FAERS Safety Report 5281503-7 (Version None)
Quarter: 2007Q1

REPORT INFORMATION
  Report Type: 
  Country: None (occurrence: None)
  Receive Date: 20070330
  Receipt Date: 20070322
  Transmission Date: 20070707
  Serious: Yes (Other)
  Sender: FDA-Public Use
  Company Number: US-KINGPHARMUSA00001-K200700245

PATIENT

DRUGS (4)
  1. EPIPEN [Suspect]
     Dosage: UNK, SINGLE
     Dates: start: 20070225, end: 20070225
  2. PREMARIN [Concomitant]
     Dosage: UNK, QD
     Route: 048
  3. ADVIL /00109201/ [Concomitant]
     Dosage: UNK, PRN
     Route: 048
  4. VITAMIN CAP [Concomitant]
     Dosage: UNK, QD

REACTIONS (8)
  - ACCIDENTAL EXPOSURE [None]
  - HYPOAESTHESIA [None]
  - INJECTION SITE BRUISING [None]
  - INJECTION SITE COLDNESS [None]
  - INJECTION SITE PAIN [None]
  - INJECTION SITE PALLOR [None]
  - INJECTION SITE SWELLING [None]
  - PARAESTHESIA [None]
